FAERS Safety Report 12552873 (Version 1)
Quarter: 2016Q3

REPORT INFORMATION
  Report Type: Spontaneous
  Country: CN (occurrence: CN)
  Receive Date: 20160713
  Receipt Date: 20160713
  Transmission Date: 20161109
  Serious: Yes (Hospitalization)
  Sender: FDA-Public Use
  Company Number: PHHY2016CN095148

PATIENT
  Age: 82 Year
  Sex: Female

DRUGS (2)
  1. METFORMIN [Suspect]
     Active Substance: METFORMIN HYDROCHLORIDE
     Indication: DIABETES MELLITUS
     Dosage: 0.5 G, TID
     Route: 048
  2. LEVOFLOXACIN. [Suspect]
     Active Substance: LEVOFLOXACIN
     Indication: RESPIRATORY TRACT INFECTION
     Dosage: 0.5 G, QD
     Route: 041

REACTIONS (6)
  - Epilepsy [Unknown]
  - Loss of consciousness [Unknown]
  - Cyanosis [Unknown]
  - Muscle twitching [Unknown]
  - Eye movement disorder [Unknown]
  - Lactic acidosis [Recovered/Resolved]
